FAERS Safety Report 8484202-3 (Version None)
Quarter: 2012Q3

REPORT INFORMATION
  Report Type: 
  Country: None (occurrence: None)
  Receive Date: 20120703
  Receipt Date: 20120619
  Transmission Date: 20120928
  Serious: No
  Sender: FDA-Public Use
  Company Number: US-JNJFOC-20111210065

PATIENT
  Sex: Male
  Weight: 83.92 kg

DRUGS (5)
  1. DURAGESIC-100 [Suspect]
     Indication: SPINAL FUSION SURGERY
     Route: 062
     Dates: start: 20110901
  2. PERCOCET [Concomitant]
     Indication: BREAKTHROUGH PAIN
     Route: 048
     Dates: start: 20110101
  3. DURAGESIC-100 [Suspect]
     Route: 062
     Dates: start: 20111201
  4. DURAGESIC-100 [Suspect]
     Indication: SPINAL COLUMN STENOSIS
     Route: 062
     Dates: start: 20111201
  5. DURAGESIC-100 [Suspect]
     Route: 062
     Dates: start: 20110901

REACTIONS (3)
  - WRONG TECHNIQUE IN DRUG USAGE PROCESS [None]
  - PRODUCT QUALITY ISSUE [None]
  - INCORRECT DOSE ADMINISTERED [None]
